FAERS Safety Report 9343361 (Version 3)
Quarter: 2013Q3

REPORT INFORMATION
  Report Type: Spontaneous
  Country: CA (occurrence: CA)
  Receive Date: 20130612
  Receipt Date: 20130802
  Transmission Date: 20140515
  Serious: Yes (Death, Hospitalization, Other)
  Sender: FDA-Public Use
  Company Number: CA-AMGEN-CANSP2013040911

PATIENT
  Age: 88 Year
  Sex: Female
  Weight: 61 kg

DRUGS (5)
  1. PROLIA [Suspect]
     Indication: OSTEOPOROSIS POSTMENOPAUSAL
     Dosage: 60 MG, Q6MO
     Route: 058
     Dates: start: 20120618, end: 20121214
  2. PROLIA [Suspect]
     Indication: HIP FRACTURE
  3. TYLENOL                            /00020001/ [Concomitant]
     Dosage: 325 MG, Q4H
     Route: 048
     Dates: start: 1992
  4. CALCITE D [Concomitant]
     Dosage: 500/400, BID
     Route: 048
  5. ASA [Concomitant]
     Dosage: 80 MG, QD

REACTIONS (12)
  - Pancreatic neoplasm [Fatal]
  - Bronchopneumonia [Fatal]
  - Jaundice cholestatic [Unknown]
  - Lumbar vertebral fracture [Unknown]
  - Thoracic vertebral fracture [Unknown]
  - Renal cyst [Unknown]
  - Renal disorder [Unknown]
  - Metastases to spine [Unknown]
  - Pulmonary mass [Unknown]
  - Memory impairment [Unknown]
  - Weight decreased [Unknown]
  - Disorientation [Unknown]
